FAERS Safety Report 11501923 (Version 2)
Quarter: 2015Q3

REPORT INFORMATION
  Report Type: Spontaneous
  Country: FR (occurrence: FR)
  Receive Date: 20150914
  Receipt Date: 20150918
  Transmission Date: 20151125
  Serious: Yes (Death)
  Sender: FDA-Public Use
  Company Number: FR-PFIZER INC-2015301023

PATIENT
  Age: 11 Week
  Sex: Female

DRUGS (36)
  1. LASILIX /00032601/ [Suspect]
     Active Substance: FUROSEMIDE
     Indication: PATENT DUCTUS ARTERIOSUS
     Dosage: UNK
     Dates: start: 20150101, end: 20150130
  2. CUROSURF /02139301/ [Concomitant]
     Dosage: 1 DF, SINGLE
     Dates: start: 20141217, end: 20141217
  3. CAFEINE [Suspect]
     Active Substance: CAFFEINE
     Indication: APNOEA NEONATAL
     Dosage: UNK
     Dates: start: 20141217
  4. NEOSYNEPHRINE [Suspect]
     Active Substance: PHENYLEPHRINE HYDROCHLORIDE
     Indication: DIAGNOSTIC PROCEDURE
     Dosage: UNK
     Route: 031
     Dates: start: 20150222, end: 20150222
  5. MYDRIATICUM [Suspect]
     Active Substance: TROPICAMIDE
     Dosage: UNK
     Route: 031
     Dates: start: 20150310, end: 20150310
  6. BACTROBAN [Suspect]
     Active Substance: MUPIROCIN\MUPIROCIN CALCIUM
     Indication: INFECTION
     Dosage: UNK
     Route: 045
     Dates: start: 20150103, end: 20150107
  7. SALINE SOLUTION [Concomitant]
     Active Substance: SODIUM CHLORIDE
     Indication: HYPOVOLAEMIA
     Dosage: UNK
     Dates: start: 20141217, end: 20141217
  8. LIQUIGEN [Concomitant]
     Active Substance: MEDIUM-CHAIN TRIGLYCERIDES
     Dosage: UNK
     Dates: start: 20150214
  9. CEFOTAXIME [Suspect]
     Active Substance: CEFOTAXIME SODIUM
     Indication: STAPHYLOCOCCAL SEPSIS
     Dosage: UNK
     Route: 042
     Dates: start: 20141225, end: 20141226
  10. BACTROBAN [Suspect]
     Active Substance: MUPIROCIN\MUPIROCIN CALCIUM
     Dosage: UNK
     Route: 045
     Dates: start: 20150204, end: 20150209
  11. INFANRIX HEXA [Suspect]
     Active Substance: DIPHTHERIA AND TETANUS TOXOIDS AND ACELLULAR PERTUSSIS ADSORBED, INACTIVATED POLIOVIRUS AND HAEMOPHILUS B CONJUGATE AND HEPATITIS B VIRUS VACCINE
     Indication: IMMUNISATION
     Dosage: 1 DF, SINGLE
     Dates: start: 20150216, end: 20150216
  12. BRISTOPEN [Suspect]
     Active Substance: OXACILLIN SODIUM
     Indication: STAPHYLOCOCCAL SEPSIS
     Dosage: UNK
     Route: 042
     Dates: start: 20141225, end: 20150106
  13. BACTROBAN [Suspect]
     Active Substance: MUPIROCIN\MUPIROCIN CALCIUM
     Dosage: UNK
     Route: 045
     Dates: start: 20150303, end: 20150308
  14. MYDRIATICUM [Suspect]
     Active Substance: TROPICAMIDE
     Dosage: UNK
     Route: 031
     Dates: start: 20150317, end: 20150317
  15. ALBUMINE [Concomitant]
     Indication: HYPOVOLAEMIA
     Dosage: UNK
     Dates: start: 20141217, end: 20141217
  16. FOLIC ACID. [Concomitant]
     Active Substance: FOLIC ACID
     Dosage: 2.5 MG, 1X/DAY
  17. STEROGYL /00107901/ [Concomitant]
     Dosage: 2 GTT, 1X/DAY
  18. TRIFLUCAN [Suspect]
     Active Substance: FLUCONAZOLE
     Indication: INFECTION PROPHYLAXIS
     Dosage: UNK
     Dates: start: 20141219, end: 20150212
  19. RIFAMYCINE CHIBRET [Suspect]
     Active Substance: RIFAMYCIN
     Indication: PROPHYLAXIS
     Dosage: UNK
     Route: 031
     Dates: start: 20141217, end: 20141217
  20. NEOSYNEPHRINE [Suspect]
     Active Substance: PHENYLEPHRINE HYDROCHLORIDE
     Dosage: UNK
     Route: 031
     Dates: start: 20150317, end: 20150317
  21. INFANRIX HEXA [Suspect]
     Active Substance: DIPHTHERIA AND TETANUS TOXOIDS AND ACELLULAR PERTUSSIS ADSORBED, INACTIVATED POLIOVIRUS AND HAEMOPHILUS B CONJUGATE AND HEPATITIS B VIRUS VACCINE
     Dosage: 1 DF, SINGLE
     Dates: start: 20150316, end: 20150316
  22. FERROSTRANE [Concomitant]
     Active Substance: SODIUM FEREDETATE
     Dosage: 0.5 ML, 2X/DAY
  23. ALDACTONE [Suspect]
     Active Substance: SPIRONOLACTONE
     Indication: PATENT DUCTUS ARTERIOSUS
     Dosage: UNK
     Dates: start: 20150106
  24. PREVNAR 13 [Suspect]
     Active Substance: PNEUMOCOCCAL 13-VALENT CONJUGATE VACCINE
     Dosage: 0.5 ML, SINGLE
     Dates: start: 20150316, end: 20150316
  25. RIFAMYCINE CHIBRET [Suspect]
     Active Substance: RIFAMYCIN
     Indication: INFECTION
     Dosage: UNK
     Dates: start: 20150108, end: 20150112
  26. VITAMIN K [Suspect]
     Active Substance: PHYTONADIONE
     Indication: HAEMORRHAGE PROPHYLAXIS
     Dosage: UNK
     Route: 048
     Dates: start: 20141217
  27. BACTROBAN [Suspect]
     Active Substance: MUPIROCIN\MUPIROCIN CALCIUM
     Dosage: UNK
     Route: 045
     Dates: start: 20150218, end: 20150223
  28. TOBREX [Suspect]
     Active Substance: TOBRAMYCIN
     Indication: INFECTION
     Dosage: UNK
     Route: 031
     Dates: start: 20150113, end: 20150121
  29. NEOSYNEPHRINE [Suspect]
     Active Substance: PHENYLEPHRINE HYDROCHLORIDE
     Dosage: UNK
     Route: 031
     Dates: start: 20150310, end: 20150310
  30. MYDRIATICUM [Suspect]
     Active Substance: TROPICAMIDE
     Indication: DIAGNOSTIC PROCEDURE
     Dosage: UNK
     Route: 031
     Dates: start: 20150222, end: 20150222
  31. OXACILLIN [Concomitant]
     Active Substance: OXACILLIN SODIUM
     Indication: STAPHYLOCOCCAL SEPSIS
     Dosage: UNK
     Dates: start: 20141225, end: 20150106
  32. UVESTEROL [Concomitant]
     Dosage: 1 DF, DAILY
  33. PREVNAR 13 [Suspect]
     Active Substance: PNEUMOCOCCAL 13-VALENT CONJUGATE VACCINE
     Indication: IMMUNISATION
     Dosage: 0.5 ML, SINGLE
     Dates: start: 20150216, end: 20150216
  34. VANCOMYCINE SANDOZ [Suspect]
     Active Substance: VANCOMYCIN
     Indication: STAPHYLOCOCCAL SEPSIS
     Dosage: UNK
     Route: 042
     Dates: start: 20141225, end: 20141226
  35. DOLIPRANE [Concomitant]
     Active Substance: ACETAMINOPHEN
     Dosage: 1 DF EVERY 6 HOURS (AS NEEDED)
  36. ECONAZOLE [Concomitant]
     Active Substance: ECONAZOLE
     Dosage: UNK

REACTIONS (1)
  - Necrotising enterocolitis neonatal [Fatal]

NARRATIVE: CASE EVENT DATE: 20150304
